FAERS Safety Report 20535927 (Version 1)
Quarter: 2022Q1

REPORT INFORMATION
  Report Type: Spontaneous
  Country: IT (occurrence: IT)
  Receive Date: 20220302
  Receipt Date: 20220302
  Transmission Date: 20220423
  Serious: Yes (Hospitalization)
  Sender: FDA-Public Use
  Company Number: IT-SA-SAC20220214001455

PATIENT
  Sex: Female

DRUGS (3)
  1. PLAVIX [Suspect]
     Active Substance: CLOPIDOGREL BISULFATE
     Indication: Ischaemia
     Dosage: UNK UNK, Q3H
     Route: 060
     Dates: start: 20210211
  2. PLAVIX [Suspect]
     Active Substance: CLOPIDOGREL BISULFATE
     Indication: Cerebral ischaemia
     Dosage: 75 MG, QD
     Route: 048
  3. IRON [Concomitant]
     Active Substance: IRON
     Indication: Haemoglobin decreased
     Dosage: 1 DF, QD

REACTIONS (2)
  - Haemoglobin decreased [Recovering/Resolving]
  - Gastrointestinal tube removal [Unknown]

NARRATIVE: CASE EVENT DATE: 20220209
